FAERS Safety Report 12361882 (Version 1)
Quarter: 2016Q2

REPORT INFORMATION
  Report Type: Spontaneous
  Country: US (occurrence: US)
  Receive Date: 20160512
  Receipt Date: 20160512
  Transmission Date: 20160815
  Serious: No
  Sender: FDA-Public Use
  Company Number: US-SA-2016SA069752

PATIENT
  Sex: Male

DRUGS (2)
  1. PRALUENT [Suspect]
     Active Substance: ALIROCUMAB
     Dosage: DOSE:75 MILLIGRAM(S)/MILLILITRE
     Route: 058
  2. ALIROCUMAB PREFILLED PEN [Concomitant]
     Active Substance: ALIROCUMAB
     Route: 058

REACTIONS (4)
  - Fatigue [Unknown]
  - Rash [Unknown]
  - Hypersensitivity [Unknown]
  - Skin discolouration [Unknown]
